FAERS Safety Report 13080059 (Version 2)
Quarter: 2017Q1

REPORT INFORMATION
  Report Type: Spontaneous
  Country: CA (occurrence: CA)
  Receive Date: 20170103
  Receipt Date: 20170302
  Transmission Date: 20170428
  Serious: Yes (Death, Other)
  Sender: FDA-Public Use
  Company Number: CA-ASTELLAS-2017US000141

PATIENT
  Age: 20 Year
  Sex: Female

DRUGS (2)
  1. PALIFERMIN [Concomitant]
     Active Substance: PALIFERMIN
     Indication: PRODUCT USED FOR UNKNOWN INDICATION
     Dosage: 60 ?G/KG, PER DAY (ON DAYS -6, -5, AND -4)
     Route: 065
  2. PROGRAF [Suspect]
     Active Substance: TACROLIMUS\TACROLIMUS ANHYDROUS
     Indication: PROPHYLAXIS AGAINST GRAFT VERSUS HOST DISEASE
     Dosage: 3-4 MG, EVERY 12 HOURS (STARTING FROM DAY-1)
     Route: 048

REACTIONS (3)
  - Mucosal inflammation [Recovered/Resolved]
  - Off label use [Unknown]
  - Acute myeloid leukaemia recurrent [Fatal]

NARRATIVE: CASE EVENT DATE: 20100818
